FAERS Safety Report 17486817 (Version 1)
Quarter: 2020Q1

REPORT INFORMATION
  Report Type: Spontaneous
  Country: US (occurrence: US)
  Receive Date: 20200303
  Receipt Date: 20200303
  Transmission Date: 20200409
  Serious: Yes (Other)
  Sender: FDA-Public Use
  Company Number: US-GLAXOSMITHKLINE-US2020AMR035936

PATIENT
  Age: 67 Year
  Sex: Female

DRUGS (1)
  1. LAMICTAL [Suspect]
     Active Substance: LAMOTRIGINE
     Indication: PRODUCT USED FOR UNKNOWN INDICATION
     Dosage: UNK
     Route: 065

REACTIONS (6)
  - Epigastric discomfort [Unknown]
  - Peripheral pulse decreased [Unknown]
  - Epilepsy [Unknown]
  - Hypothyroidism [Unknown]
  - Partial seizures [Unknown]
  - Fatigue [Unknown]
